APPROVED DRUG PRODUCT: AUGMENTIN '400'
Active Ingredient: AMOXICILLIN; CLAVULANATE POTASSIUM
Strength: 400MG;EQ 57MG BASE
Dosage Form/Route: TABLET, CHEWABLE;ORAL
Application: N050726 | Product #002
Applicant: US ANTIBIOTICS LLC
Approved: May 31, 1996 | RLD: Yes | RS: No | Type: DISCN